FAERS Safety Report 24154982 (Version 1)
Quarter: 2024Q3

REPORT INFORMATION
  Report Type: Spontaneous
  Country: US (occurrence: US)
  Receive Date: 20240731
  Receipt Date: 20240731
  Transmission Date: 20241016
  Serious: No
  Sender: AJANTA PHARMA
  Company Number: US-AJANTA-2024AJA00124

PATIENT
  Age: 72 Year
  Sex: Female
  Weight: 172 kg

DRUGS (1)
  1. CHOLESTYRAMINE [Suspect]
     Active Substance: CHOLESTYRAMINE
     Indication: Bowel movement irregularity
     Route: 048
     Dates: start: 202406, end: 202406

REACTIONS (3)
  - Diarrhoea [Unknown]
  - Product contamination physical [Unknown]
  - Product use in unapproved indication [Unknown]

NARRATIVE: CASE EVENT DATE: 20240601
